FAERS Safety Report 23773217 (Version 2)
Quarter: 2024Q2

REPORT INFORMATION
  Report Type: Spontaneous
  Country: US (occurrence: US)
  Receive Date: 20240423
  Receipt Date: 20240521
  Transmission Date: 20240716
  Serious: No
  Sender: FDA-Public Use
  Company Number: US-BAYER-2024A056238

PATIENT
  Age: 56 Year
  Sex: Female

DRUGS (5)
  1. ADEMPAS [Suspect]
     Active Substance: RIOCIGUAT
     Indication: Pulmonary arterial hypertension
     Dosage: 2.5 MG, TID
     Dates: start: 202305
  2. AMBRISENTAN [Concomitant]
     Active Substance: AMBRISENTAN
     Indication: Pulmonary arterial hypertension
     Dosage: 10 MG, QD
     Route: 048
     Dates: start: 202312
  3. ORENITRAM [Concomitant]
     Active Substance: TREPROSTINIL
     Dosage: 6 MG, BID
     Dates: start: 2008
  4. ORENITRAM [Concomitant]
     Active Substance: TREPROSTINIL
     Dosage: 5 MG, BID
     Dates: start: 202401
  5. ORENITRAM [Concomitant]
     Active Substance: TREPROSTINIL
     Dosage: 125 MG, BID
     Dates: start: 202401

REACTIONS (2)
  - Headache [None]
  - Dyspnoea exertional [None]
